FAERS Safety Report 25486984 (Version 1)
Quarter: 2025Q2

REPORT INFORMATION
  Report Type: Report from Study
  Country: EG (occurrence: EG)
  Receive Date: 20250627
  Receipt Date: 20250627
  Transmission Date: 20250716
  Serious: Yes (Disabling, Other)
  Sender: ROCHE
  Company Number: EG-ROCHE-10000321641

PATIENT
  Age: 50 Year
  Sex: Female
  Weight: 70 kg

DRUGS (4)
  1. PHESGO [Suspect]
     Active Substance: HYALURONIDASE-ZZXF\PERTUZUMAB\TRASTUZUMAB
     Indication: Breast cancer
     Route: 058
     Dates: start: 20241019, end: 20250408
  2. REBAMIPIDE [Concomitant]
     Active Substance: REBAMIPIDE
     Indication: Gastritis
     Route: 048
  3. ITOPRIDE [Concomitant]
     Active Substance: ITOPRIDE
     Indication: Gastritis
     Route: 048
  4. CONTROLOC [Concomitant]
     Active Substance: PANTOPRAZOLE SODIUM
     Indication: Gastritis
     Route: 048

REACTIONS (2)
  - Cardiomyopathy [Unknown]
  - Gastritis [Unknown]

NARRATIVE: CASE EVENT DATE: 20250423
